FAERS Safety Report 17235735 (Version 1)
Quarter: 2020Q1

REPORT INFORMATION
  Report Type: Spontaneous
  Country: IE (occurrence: IE)
  Receive Date: 20200103
  Receipt Date: 20200103
  Transmission Date: 20200409
  Serious: No
  Sender: FDA-Public Use
  Company Number: None

PATIENT
  Age: 50 Year
  Sex: Female
  Weight: 82 kg

DRUGS (1)
  1. NP THYROID [Suspect]
     Active Substance: LEVOTHYROXINE\LIOTHYRONINE
     Indication: AUTOIMMUNE THYROIDITIS
     Dosage: ?          QUANTITY:100 TABLET(S);?
     Route: 060

REACTIONS (6)
  - Product colour issue [None]
  - Product physical issue [None]
  - Product taste abnormal [None]
  - Product size issue [None]
  - Therapeutic product effect incomplete [None]
  - Emotional distress [None]

NARRATIVE: CASE EVENT DATE: 20200101
